FAERS Safety Report 24580994 (Version 5)
Quarter: 2025Q2

REPORT INFORMATION
  Report Type: Spontaneous
  Country: US (occurrence: US)
  Receive Date: 20241105
  Receipt Date: 20250428
  Transmission Date: 20250716
  Serious: No
  Sender: PFIZER
  Company Number: US-PFIZER INC-202400273759

PATIENT
  Age: 69 Year
  Sex: Male
  Weight: 73.48 kg

DRUGS (3)
  1. VELSIPITY [Suspect]
     Active Substance: ETRASIMOD ARGININE
     Indication: Colitis ulcerative
     Dosage: 2 MG, 1X/DAY (1 TABLET ONCE A DAY)
     Dates: start: 202408
  2. VITAMIN D3 [Concomitant]
     Active Substance: CHOLECALCIFEROL
  3. BYSTOLIC [Concomitant]
     Active Substance: NEBIVOLOL HYDROCHLORIDE
     Indication: Hypertension
     Dosage: 5 MG, 1X/DAY (HAS BEEN TAKING SEVERAL YEARS, 3 OR 4 YEARS)

REACTIONS (5)
  - Fatigue [Not Recovered/Not Resolved]
  - Hypotension [Unknown]
  - Product dose omission issue [Unknown]
  - Haemorrhage [Unknown]
  - Intentional dose omission [Unknown]

NARRATIVE: CASE EVENT DATE: 20250101
